FAERS Safety Report 5159418-4 (Version None)
Quarter: 2006Q4

REPORT INFORMATION
  Report Type: 
  Country: None (occurrence: None)
  Receive Date: 20061122
  Receipt Date: 20061122
  Transmission Date: 20070319
  Serious: Yes (Hospitalization, Other)
  Sender: FDA-Public Use
  Company Number: None

PATIENT
  Age: 25 Year
  Sex: Female
  Weight: 74.8435 kg

DRUGS (1)
  1. EFFEXOR XR [Suspect]
     Indication: POSTPARTUM DEPRESSION
     Dosage: 150 MG 1 DAILY PO
     Route: 048
     Dates: start: 20050801, end: 20061129

REACTIONS (13)
  - ABNORMAL BEHAVIOUR [None]
  - CRYING [None]
  - DIZZINESS [None]
  - FEELING COLD [None]
  - HOT FLUSH [None]
  - INSOMNIA [None]
  - LIBIDO DECREASED [None]
  - NASOPHARYNGITIS [None]
  - NAUSEA [None]
  - NERVOUS SYSTEM DISORDER [None]
  - PARAESTHESIA [None]
  - PRURITUS [None]
  - VISION BLURRED [None]
